FAERS Safety Report 9669099 (Version 1)
Quarter: 2013Q4

REPORT INFORMATION
  Report Type: Spontaneous
  Country: US (occurrence: None)
  Receive Date: 20131104
  Receipt Date: 20131104
  Transmission Date: 20140711
  Serious: Yes (Other)
  Sender: FDA-Public Use
  Company Number: None

PATIENT
  Age: 52 Year
  Sex: Female
  Weight: 56.7 kg

DRUGS (1)
  1. ALBUTEROL SULFATE [Suspect]
     Dosage: NEBULIZER SOLUTION, TWICE DAILY, INHALATION
     Route: 055

REACTIONS (5)
  - Lip blister [None]
  - Oral discomfort [None]
  - Oral herpes [None]
  - Skin exfoliation [None]
  - Product quality issue [None]
